FAERS Safety Report 7337609-1 (Version None)
Quarter: 2011Q1

REPORT INFORMATION
  Report Type: 
  Country: None (occurrence: None)
  Receive Date: 20110308
  Receipt Date: 20110222
  Transmission Date: 20110831
  Serious: Yes (Hospitalization)
  Sender: FDA-Public Use
  Company Number: US-CELGENEUS-163-21880-11021817

PATIENT
  Sex: Female

DRUGS (5)
  1. ASA [Concomitant]
     Indication: MYELOFIBROSIS
     Route: 048
     Dates: start: 20101201
  2. TYLENOL W/ CODEINE NO. 3 [Concomitant]
     Indication: PAIN
     Route: 065
  3. M.V.I. [Concomitant]
     Route: 048
  4. REVLIMID [Suspect]
     Dosage: 10 MILLIGRAM
     Route: 048
     Dates: start: 20101204, end: 20110204
  5. ALEVE [Concomitant]
     Indication: PAIN
     Route: 048

REACTIONS (1)
  - COLITIS ISCHAEMIC [None]
